FAERS Safety Report 5782603-5 (Version None)
Quarter: 2008Q2

REPORT INFORMATION
  Report Type: 
  Country: None (occurrence: None)
  Receive Date: 20080624
  Receipt Date: 20080611
  Transmission Date: 20081010
  Serious: Yes (Other)
  Sender: FDA-Public Use
  Company Number: US-PFIZER INC-2008050408

PATIENT
  Sex: Female
  Weight: 86.2 kg

DRUGS (5)
  1. LYRICA [Suspect]
     Indication: FIBROMYALGIA
  2. ACCOLATE [Concomitant]
  3. PREVACID [Concomitant]
  4. ASPIRIN [Concomitant]
  5. ALBUTEROL [Concomitant]

REACTIONS (5)
  - ARTHRALGIA [None]
  - DRUG INEFFECTIVE [None]
  - DYSPHONIA [None]
  - GASTRIC DISORDER [None]
  - TREMOR [None]
